FAERS Safety Report 21407963 (Version 1)
Quarter: 2022Q4

REPORT INFORMATION
  Report Type: Spontaneous
  Country: US (occurrence: None)
  Receive Date: 20221004
  Receipt Date: 20221004
  Transmission Date: 20230113
  Serious: Yes (Other)
  Sender: FDA-Public Use
  Company Number: 2022A330964

PATIENT
  Sex: Female

DRUGS (4)
  1. LYNPARZA [Suspect]
     Active Substance: OLAPARIB
     Indication: Breast cancer
     Route: 048
     Dates: start: 202102, end: 202206
  2. LYNPARZA [Concomitant]
     Active Substance: OLAPARIB
     Indication: Breast cancer
     Route: 048
  3. LYNPARZA [Concomitant]
     Active Substance: OLAPARIB
     Indication: Breast cancer
     Route: 048
  4. FASLODEX [Concomitant]
     Active Substance: FULVESTRANT
     Indication: Breast cancer
     Route: 065
     Dates: start: 2020, end: 202102

REACTIONS (11)
  - Malignant neoplasm progression [Not Recovered/Not Resolved]
  - Haemoglobin decreased [Recovered/Resolved]
  - Fatigue [Recovered/Resolved]
  - Pleural effusion [Recovered/Resolved]
  - Blood glucose increased [Recovered/Resolved]
  - Ageusia [Recovered/Resolved]
  - Decreased appetite [Recovered/Resolved]
  - Weight decreased [Recovered/Resolved]
  - Alopecia [Recovered/Resolved]
  - Oral pain [Recovered/Resolved]
  - Candida infection [Recovered/Resolved]
